FAERS Safety Report 13418709 (Version 1)
Quarter: 2017Q2

REPORT INFORMATION
  Report Type: Spontaneous
  Country: US (occurrence: US)
  Receive Date: 20170406
  Receipt Date: 20170406
  Transmission Date: 20170830
  Serious: Yes (Death, Other)
  Sender: FDA-Public Use
  Company Number: US-IMPAX LABORATORIES, INC-2017-IPXL-00604

PATIENT
  Age: 28 Year
  Sex: Male

DRUGS (15)
  1. METHADONE HYDROCHLORIDE. [Suspect]
     Active Substance: METHADONE HYDROCHLORIDE
     Dosage: 40 MG, EVERY 8HR
     Route: 048
  2. HYDROMORPHONE [Suspect]
     Active Substance: HYDROMORPHONE
     Dosage: 8 MG EVERY 10 MINUTES
     Route: 040
  3. HYDROMORPHONE [Suspect]
     Active Substance: HYDROMORPHONE
     Indication: CANCER PAIN
     Dosage: UNK
     Route: 065
  4. METHADONE HYDROCHLORIDE. [Suspect]
     Active Substance: METHADONE HYDROCHLORIDE
     Indication: CANCER PAIN
     Dosage: UNK
     Route: 065
  5. HYDROMORPHONE [Suspect]
     Active Substance: HYDROMORPHONE
     Dosage: 3 MG
     Route: 040
  6. MORPHINE SULFATE EXTENDED-RELEASE [Suspect]
     Active Substance: MORPHINE SULFATE
     Indication: CANCER PAIN
     Dosage: UNK
     Route: 048
  7. HYDROMORPHONE [Suspect]
     Active Substance: HYDROMORPHONE
     Dosage: CONTINOUS RATE DECREASED FROM 100 MG/H TO 0 MG/H
     Route: 042
  8. HYDROMORPHONE [Suspect]
     Active Substance: HYDROMORPHONE
     Dosage: 40 MG
     Route: 042
  9. OXYCODONE HYDROCHLORIDE. [Suspect]
     Active Substance: OXYCODONE HYDROCHLORIDE
     Indication: CANCER PAIN
     Dosage: UNK
     Route: 065
  10. HYDROMORPHONE [Suspect]
     Active Substance: HYDROMORPHONE
     Dosage: 50MG/H WITH 25MG BOLUS DOSES
     Route: 042
  11. METHADONE HYDROCHLORIDE. [Suspect]
     Active Substance: METHADONE HYDROCHLORIDE
     Dosage: 60 MG, EVERY 8HR
     Route: 048
  12. METHADONE HYDROCHLORIDE. [Suspect]
     Active Substance: METHADONE HYDROCHLORIDE
     Dosage: 40 MG, EVERY 8HR
     Route: 048
  13. HYDROMORPHONE [Suspect]
     Active Substance: HYDROMORPHONE
     Dosage: UNK; PATIENT-CONTROLLED ANALGESIA
     Route: 042
  14. HYDROMORPHONE [Suspect]
     Active Substance: HYDROMORPHONE
     Dosage: 100 MG/H WITH A 50 MG BOLUS EVERY 15 MINUTES
     Route: 042
  15. HYDROMORPHONE [Suspect]
     Active Substance: HYDROMORPHONE
     Dosage: 32 MG (AVERAGE 4 DOSES PER DAY) AS NEEDED
     Route: 048

REACTIONS (8)
  - General physical health deterioration [Fatal]
  - International normalised ratio increased [Unknown]
  - Somnolence [Recovered/Resolved]
  - Delirium [Recovered/Resolved]
  - Generalised oedema [Unknown]
  - Ascites [Unknown]
  - Hallucination [Recovered/Resolved]
  - Drug ineffective [Unknown]
